FAERS Safety Report 8180187-8 (Version None)
Quarter: 2012Q1

REPORT INFORMATION
  Report Type: 
  Country: None (occurrence: None)
  Receive Date: 20120302
  Receipt Date: 20120228
  Transmission Date: 20120608
  Serious: Yes (Other)
  Sender: FDA-Public Use
  Company Number: US-BAYER-2012-020003

PATIENT

DRUGS (1)
  1. LIDOCAINE HCL [Suspect]
     Indication: SKIN INJURY
     Route: 061

REACTIONS (1)
  - HAEMORRHAGIC DIATHESIS [None]
